FAERS Safety Report 13584405 (Version 1)
Quarter: 2017Q2

REPORT INFORMATION
  Report Type: Spontaneous
  Country: US (occurrence: US)
  Receive Date: 20170526
  Receipt Date: 20170526
  Transmission Date: 20170830
  Serious: No
  Sender: FDA-Public Use
  Company Number: US-ALKABELLO-2016AA002546

PATIENT
  Sex: Male

DRUGS (6)
  1. VENOMS, MIXED VESPID VENOM PROTEIN [Suspect]
     Active Substance: DOLICHOVESPULA ARENARIA VENOM PROTEIN\ DOLICHOVESPULA MACULATA VENOM PROTEIN\ VESPULA MACULIFRONS VENOM PROTEIN
     Route: 058
  2. HONEY BEE VENOM [Suspect]
     Active Substance: APIS MELLIFERA VENOM
     Route: 058
     Dates: start: 2016
  3. VENOMS, MIXED VESPID VENOM PROTEIN [Suspect]
     Active Substance: DOLICHOVESPULA ARENARIA VENOM PROTEIN\ DOLICHOVESPULA MACULATA VENOM PROTEIN\ VESPULA MACULIFRONS VENOM PROTEIN
     Route: 058
     Dates: start: 2016
  4. HONEY BEE VENOM [Suspect]
     Active Substance: APIS MELLIFERA VENOM
     Route: 058
  5. COMMON PAPER WASP VENOM PROTEIN [Suspect]
     Active Substance: POLISTES FUSCATUS VENOM PROTEIN
     Route: 058
     Dates: start: 2016
  6. COMMON PAPER WASP VENOM PROTEIN [Suspect]
     Active Substance: POLISTES FUSCATUS VENOM PROTEIN
     Route: 058

REACTIONS (2)
  - Hypersensitivity [Unknown]
  - Injection site induration [Unknown]
